FAERS Safety Report 20821671 (Version 4)
Quarter: 2023Q1

REPORT INFORMATION
  Report Type: Spontaneous
  Country: US (occurrence: US)
  Receive Date: 20220512
  Receipt Date: 20230207
  Transmission Date: 20230418
  Serious: Yes (Other)
  Sender: FDA-Public Use
  Company Number: US-PFIZER INC-202200403853

PATIENT
  Age: 56 Year
  Sex: Male

DRUGS (1)
  1. XELJANZ XR [Suspect]
     Active Substance: TOFACITINIB CITRATE
     Dosage: 11 MG
     Route: 048
     Dates: start: 202112

REACTIONS (8)
  - Thrombocytopenia [Unknown]
  - Pneumonia [Unknown]
  - Gastric infection [Unknown]
  - Arthralgia [Unknown]
  - Arthritis [Unknown]
  - Gastritis [Unknown]
  - Chest pain [Unknown]
  - Renal pain [Not Recovered/Not Resolved]

NARRATIVE: CASE EVENT DATE: 20220101
